FAERS Safety Report 15663667 (Version 2)
Quarter: 2019Q1

REPORT INFORMATION
  Report Type: Report from Study
  Country: None (occurrence: RO)
  Receive Date: 20181128
  Receipt Date: 20190204
  Transmission Date: 20190417
  Serious: Yes (Hospitalization, Other)
  Sender: FDA-Public Use
  Company Number: RO-ABBVIE-18K-135-2538211-00

PATIENT
  Age: 67 Year
  Sex: Female

DRUGS (4)
  1. SINTROM [Concomitant]
     Active Substance: ACENOCOUMAROL
     Indication: CARDIOVASCULAR DISORDER
     Route: 048
     Dates: start: 2016
  2. DILVAS [Concomitant]
     Indication: CARDIOVASCULAR DISORDER
     Route: 048
     Dates: start: 2016
  3. DIAPREL [Concomitant]
     Active Substance: GLICLAZIDE
     Indication: DIABETES MELLITUS
     Route: 048
  4. HUMIRA [Suspect]
     Active Substance: ADALIMUMAB
     Indication: RHEUMATOID ARTHRITIS
     Route: 058
     Dates: start: 20120915, end: 20181015

REACTIONS (6)
  - Feeding disorder [Recovering/Resolving]
  - Helicobacter infection [Not Recovered/Not Resolved]
  - Vomiting [Recovered/Resolved]
  - Hepatitis B [Not Recovered/Not Resolved]
  - Back pain [Not Recovered/Not Resolved]
  - Hepatitis B core antibody positive [Not Recovered/Not Resolved]

NARRATIVE: CASE EVENT DATE: 201810
